FAERS Safety Report 4386857-1 (Version None)
Quarter: 2004Q2

REPORT INFORMATION
  Report Type: 
  Country: None (occurrence: None)
  Receive Date: 20040623
  Receipt Date: 20040607
  Transmission Date: 20050107
  Serious: Yes (Hospitalization)
  Sender: FDA-Public Use
  Company Number: USA040669538

PATIENT
  Age: 53 Year
  Sex: Female

DRUGS (3)
  1. FORTEO [Suspect]
     Indication: OSTEOPOROSIS
     Dates: start: 20030101
  2. MIACALCIN [Concomitant]
  3. ACTONEL [Concomitant]

REACTIONS (4)
  - FALL [None]
  - HEAD INJURY [None]
  - PHARMACEUTICAL PRODUCT COMPLAINT [None]
  - SPINAL FUSION ACQUIRED [None]
